FAERS Safety Report 4749619-9 (Version None)
Quarter: 2005Q3

REPORT INFORMATION
  Report Type: 
  Country: None (occurrence: None)
  Receive Date: 20050822
  Receipt Date: 20050726
  Transmission Date: 20060218
  Serious: Yes (Hospitalization)
  Sender: FDA-Public Use
  Company Number: US-MERCK-0507USA03986

PATIENT
  Age: 76 Year
  Sex: Male

DRUGS (2)
  1. VIOXX [Suspect]
     Indication: ARTHRALGIA
     Route: 048
     Dates: start: 20020103, end: 20031007
  2. VIOXX [Suspect]
     Route: 048
     Dates: start: 20031008, end: 20040714

REACTIONS (11)
  - ARTHROPATHY [None]
  - BUNDLE BRANCH BLOCK RIGHT [None]
  - CARDIAC FAILURE CONGESTIVE [None]
  - CARDIOMYOPATHY [None]
  - EJECTION FRACTION DECREASED [None]
  - FATIGUE [None]
  - GASTROINTESTINAL ULCER [None]
  - HYPERTENSION [None]
  - HYPOKINESIA [None]
  - PULMONARY OEDEMA [None]
  - TOBACCO ABUSE [None]
